FAERS Safety Report 25962023 (Version 1)
Quarter: 2025Q4

REPORT INFORMATION
  Report Type: Spontaneous
  Country: US (occurrence: None)
  Receive Date: 20251024
  Receipt Date: 20251024
  Transmission Date: 20260118
  Serious: Yes (Hospitalization)
  Sender: FDA-CTU
  Company Number: None

PATIENT
  Age: 55 Year
  Sex: Female
  Weight: 65.25 kg

DRUGS (2)
  1. BOTOX [Suspect]
     Active Substance: ONABOTULINUMTOXINA
     Indication: Migraine
     Dosage: OTHER STRENGTH : UNITS;?
  2. TYLENOL [Concomitant]
     Active Substance: ACETAMINOPHEN

REACTIONS (8)
  - Dyspnoea [None]
  - Muscle disorder [None]
  - Dropped head syndrome [None]
  - Asthenia [None]
  - Madarosis [None]
  - Muscle twitching [None]
  - Spinal disorder [None]
  - Pain [None]

NARRATIVE: CASE EVENT DATE: 20250805
